FAERS Safety Report 7005212-9 (Version None)
Quarter: 2010Q3

REPORT INFORMATION
  Report Type: 
  Country: None (occurrence: None)
  Receive Date: 20100921
  Receipt Date: 20100908
  Transmission Date: 20110219
  Serious: No
  Sender: FDA-Public Use
  Company Number: US-B.I. PHARMACEUTICALS,INC./RIDGEFIELD-2010-BP-09046BP

PATIENT
  Sex: Female

DRUGS (13)
  1. SPIRIVA [Suspect]
     Indication: CHRONIC OBSTRUCTIVE PULMONARY DISEASE
     Dosage: 18 MCG
     Route: 055
     Dates: start: 20100806, end: 20100806
  2. SPIRIVA [Suspect]
     Indication: EMPHYSEMA
  3. SPIRIVA [Suspect]
     Indication: BRONCHITIS
  4. EVISTA [Concomitant]
     Indication: OSTEOPOROSIS
  5. CALCITRIOL [Concomitant]
     Indication: OSTEOPOROSIS
  6. VITAMIN B-12 [Concomitant]
     Indication: HEPATIC CIRRHOSIS
  7. MASOLINC [Concomitant]
  8. TAGAMET [Concomitant]
  9. CITRALCALCIUM [Concomitant]
  10. VITAMIN D [Concomitant]
  11. COLACE [Concomitant]
  12. SENOKOT [Concomitant]
  13. CODLIVER OIL [Concomitant]

REACTIONS (5)
  - ABDOMINAL PAIN [None]
  - CONDITION AGGRAVATED [None]
  - CONSTIPATION [None]
  - HEADACHE [None]
  - VOMITING [None]
